FAERS Safety Report 4639698-1 (Version None)
Quarter: 2005Q2

REPORT INFORMATION
  Report Type: 
  Country: None (occurrence: None)
  Receive Date: 20050415
  Receipt Date: 20050331
  Transmission Date: 20051028
  Serious: No
  Sender: FDA-Public Use
  Company Number: 10773

PATIENT
  Age: 57 Year
  Sex: Female

DRUGS (1)
  1. PAMIDRONATE DISODIUM [Suspect]
     Indication: METASTASES TO BONE
     Dosage: 60 MG MONTHLY IV
     Route: 042
     Dates: start: 20000626, end: 20041014

REACTIONS (2)
  - ABSCESS JAW [None]
  - POST PROCEDURAL COMPLICATION [None]
